FAERS Safety Report 18410232 (Version 2)
Quarter: 2021Q2

REPORT INFORMATION
  Report Type: Report from Study
  Country: US (occurrence: US)
  Receive Date: 20201021
  Receipt Date: 20210428
  Transmission Date: 20210717
  Serious: No
  Sender: FDA-Public Use
  Company Number: US-KYOWAKIRIN-2020BKK016873

PATIENT

DRUGS (2)
  1. CRYSVITA [Suspect]
     Active Substance: BUROSUMAB-TWZA
     Indication: HEREDITARY HYPOPHOSPHATAEMIC RICKETS
     Dosage: 60 MG (IN COMBINATION WITH 1 VIAL OF 10 MG TO ACHIEVE A DOSE OF 70 MG), 1X/4 WEEKS
     Route: 058
  2. CRYSVITA [Suspect]
     Active Substance: BUROSUMAB-TWZA
     Indication: HEREDITARY HYPOPHOSPHATAEMIC RICKETS
     Dosage: 10 MG (IN COMBINATION WITH 2 VIALS OF 30 MG TO ACHIEVE A DOSE OF 70 MG), 1X/4 WEEKS
     Route: 058

REACTIONS (3)
  - Back pain [Unknown]
  - Bone pain [Unknown]
  - Neck pain [Unknown]

NARRATIVE: CASE EVENT DATE: 20200919
